FAERS Safety Report 25865958 (Version 1)
Quarter: 2025Q3

REPORT INFORMATION
  Report Type: Spontaneous
  Country: CA (occurrence: CA)
  Receive Date: 20250930
  Receipt Date: 20250930
  Transmission Date: 20251021
  Serious: Yes (Other)
  Sender: SANDOZ
  Company Number: CA-SANDOZ-SDZ2025CA071516

PATIENT
  Age: 28 Year
  Sex: Female

DRUGS (4)
  1. IMMUNE GLOBULIN NOS [Suspect]
     Active Substance: IMMUNE GLOBULIN NOS
     Indication: Muscular dystrophy
     Route: 042
  2. METHOTREXATE [Suspect]
     Active Substance: METHOTREXATE
     Indication: Muscular dystrophy
     Dosage: 15 MG, Q12H
     Route: 065
  3. MYCOPHENOLATE MOFETIL [Suspect]
     Active Substance: MYCOPHENOLATE MOFETIL
     Indication: Muscular dystrophy
     Dosage: 1000 MG, Q12H
     Route: 065
  4. PREDNISONE [Suspect]
     Active Substance: PREDNISONE
     Indication: Muscular dystrophy
     Route: 065

REACTIONS (3)
  - Hepatic function abnormal [Unknown]
  - Cytopenia [Unknown]
  - Off label use [Unknown]
